FAERS Safety Report 23891969 (Version 1)
Quarter: 2024Q2

REPORT INFORMATION
  Report Type: Spontaneous
  Country: US (occurrence: None)
  Receive Date: 20240524
  Receipt Date: 20240524
  Transmission Date: 20240715
  Serious: No
  Sender: FDA-Public Use
  Company Number: US-ROCHE-3479154

PATIENT

DRUGS (1)
  1. ACTEMRA [Suspect]
     Active Substance: TOCILIZUMAB
     Indication: Rheumatoid arthritis
     Dosage: UNKNOWN
     Route: 065
     Dates: start: 20231205

REACTIONS (9)
  - Cough [Unknown]
  - Swelling [Unknown]
  - Ill-defined disorder [Unknown]
  - Pain [Unknown]
  - Rheumatoid arthritis [Unknown]
  - Irritability [Unknown]
  - Stress [Unknown]
  - Illness [Unknown]
  - Wrong technique in device usage process [Unknown]

NARRATIVE: CASE EVENT DATE: 20231219
